FAERS Safety Report 14068361 (Version 1)
Quarter: 2017Q4

REPORT INFORMATION
  Report Type: Spontaneous
  Country: US (occurrence: US)
  Receive Date: 20171010
  Receipt Date: 20171010
  Transmission Date: 20180321
  Serious: Yes (Other)
  Sender: FDA-Public Use
  Company Number: US-SOMERSET-2017-US-000055

PATIENT
  Age: 50 Year
  Sex: Female
  Weight: 181.44 kg

DRUGS (1)
  1. CYANOCOBALAMIN INJECTION - 1ML [Suspect]
     Active Substance: CYANOCOBALAMIN
     Route: 058
     Dates: start: 20170711

REACTIONS (2)
  - Injection site rash [None]
  - Dyspnoea [None]

NARRATIVE: CASE EVENT DATE: 20170711
